FAERS Safety Report 25434410 (Version 1)
Quarter: 2025Q2

REPORT INFORMATION
  Report Type: Spontaneous
  Country: FR (occurrence: FR)
  Receive Date: 20250613
  Receipt Date: 20250613
  Transmission Date: 20250716
  Serious: Yes (Death)
  Sender: MYLAN
  Company Number: None

PATIENT
  Age: 65 Year
  Sex: Female

DRUGS (12)
  1. TRAMADOL [Suspect]
     Active Substance: TRAMADOL
     Indication: Product used for unknown indication
  2. TRAMADOL [Suspect]
     Active Substance: TRAMADOL
     Route: 065
  3. TRAMADOL [Suspect]
     Active Substance: TRAMADOL
     Route: 065
  4. TRAMADOL [Suspect]
     Active Substance: TRAMADOL
  5. CODEINE [Suspect]
     Active Substance: CODEINE
     Indication: Product used for unknown indication
  6. CODEINE [Suspect]
     Active Substance: CODEINE
     Route: 065
  7. CODEINE [Suspect]
     Active Substance: CODEINE
     Route: 065
  8. CODEINE [Suspect]
     Active Substance: CODEINE
  9. OXAZEPAM [Suspect]
     Active Substance: OXAZEPAM
     Indication: Product used for unknown indication
  10. OXAZEPAM [Suspect]
     Active Substance: OXAZEPAM
     Route: 065
  11. OXAZEPAM [Suspect]
     Active Substance: OXAZEPAM
     Route: 065
  12. OXAZEPAM [Suspect]
     Active Substance: OXAZEPAM

REACTIONS (1)
  - Death [Fatal]
